FAERS Safety Report 13491279 (Version 1)
Quarter: 2017Q2

REPORT INFORMATION
  Report Type: Spontaneous
  Country: US (occurrence: US)
  Receive Date: 20170427
  Receipt Date: 20170427
  Transmission Date: 20170830
  Serious: Yes (Hospitalization)
  Sender: FDA-Public Use
  Company Number: US-ASTRAZENECA-2017SE42692

PATIENT
  Age: 87 Year
  Sex: Female

DRUGS (1)
  1. SEROQUEL [Suspect]
     Active Substance: QUETIAPINE FUMARATE
     Indication: DEMENTIA
     Route: 048

REACTIONS (6)
  - Hypertensive crisis [Unknown]
  - Headache [Unknown]
  - Drug hypersensitivity [Unknown]
  - Hypertension [Recovered/Resolved]
  - Product use in unapproved indication [Unknown]
  - Off label use [Unknown]

NARRATIVE: CASE EVENT DATE: 201612
